FAERS Safety Report 15589652 (Version 1)
Quarter: 2018Q4

REPORT INFORMATION
  Report Type: Spontaneous
  Country: GB (occurrence: GB)
  Receive Date: 20181106
  Receipt Date: 20181106
  Transmission Date: 20190205
  Serious: Yes (Other)
  Sender: FDA-Public Use
  Company Number: GB-ACCORD-090818

PATIENT
  Age: 41 Year
  Sex: Female

DRUGS (7)
  1. SIMVASTATIN. [Concomitant]
     Active Substance: SIMVASTATIN
  2. MEBEVERINE [Concomitant]
     Active Substance: MEBEVERINE
  3. MOCLOBEMIDE [Concomitant]
     Active Substance: MOCLOBEMIDE
  4. JANUVIA [Concomitant]
     Active Substance: SITAGLIPTIN PHOSPHATE
  5. GLICLAZIDE [Concomitant]
     Active Substance: GLICLAZIDE
  6. TOPIRAMATE. [Suspect]
     Active Substance: TOPIRAMATE
     Route: 048
     Dates: start: 20170801
  7. LANSOPRAZOLE. [Concomitant]
     Active Substance: LANSOPRAZOLE

REACTIONS (7)
  - Epistaxis [Unknown]
  - Abnormal dreams [Unknown]
  - Off label use [Unknown]
  - Somnolence [Not Recovered/Not Resolved]
  - Vision blurred [Unknown]
  - Sudden onset of sleep [Unknown]
  - Feeling drunk [Unknown]

NARRATIVE: CASE EVENT DATE: 20171001
